FAERS Safety Report 16956183 (Version 3)
Quarter: 2020Q1

REPORT INFORMATION
  Report Type: Not Available
  Country: US (occurrence: US)
  Receive Date: 20191024
  Receipt Date: 20200107
  Transmission Date: 20200409
  Serious: No
  Sender: FDA-Public Use
  Company Number: US-NEUROCRINE BIOSCIENCES INC.-2019NBI03073

PATIENT
  Sex: Female

DRUGS (10)
  1. LAMOTRIGINE. [Concomitant]
     Active Substance: LAMOTRIGINE
  2. VENLAFAXINE [Concomitant]
     Active Substance: VENLAFAXINE HYDROCHLORIDE
     Dates: start: 20191018, end: 20191025
  3. CLONIDINE. [Concomitant]
     Active Substance: CLONIDINE
     Dosage: AT BEDTIME
  4. VRAYLAR [Concomitant]
     Active Substance: CARIPRAZINE
  5. ZOLPIDEM [Concomitant]
     Active Substance: ZOLPIDEM TARTRATE
     Dosage: AT BEDTIME
  6. GABAPENTIN. [Concomitant]
     Active Substance: GABAPENTIN
     Dosage: FOUR TIMES A DAY (QID)
  7. TOPAMAX [Suspect]
     Active Substance: TOPIRAMATE
     Indication: PRODUCT USED FOR UNKNOWN INDICATION
     Dates: start: 201909, end: 201910
  8. VENLAFAXINE [Concomitant]
     Active Substance: VENLAFAXINE HYDROCHLORIDE
     Dates: start: 20191026
  9. AUSTEDO [Concomitant]
     Active Substance: DEUTETRABENAZINE
  10. INGREZZA [Suspect]
     Active Substance: VALBENAZINE
     Indication: TARDIVE DYSKINESIA
     Route: 048
     Dates: start: 20180617, end: 201911

REACTIONS (5)
  - Therapeutic product effect decreased [None]
  - Dyskinesia [Recovering/Resolving]
  - Tremor [Recovering/Resolving]
  - Psychomotor hyperactivity [Unknown]
  - Tardive dyskinesia [Unknown]

NARRATIVE: CASE EVENT DATE: 2019
